FAERS Safety Report 4447714-5 (Version None)
Quarter: 2004Q3

REPORT INFORMATION
  Report Type: 
  Country: None (occurrence: None)
  Receive Date: 20040802
  Receipt Date: 20040525
  Transmission Date: 20050211
  Serious: No
  Sender: FDA-Public Use
  Company Number: 2004-118231-NL

PATIENT
  Age: 32 Year
  Sex: Female
  Weight: 45.5 kg

DRUGS (2)
  1. NUVARING [Suspect]
     Indication: CONTRACEPTION
     Dosage: DF DAILY VAGINAL
     Route: 067
     Dates: start: 20040425, end: 20040515
  2. ZOLOFT [Concomitant]

REACTIONS (4)
  - ABDOMINAL PAIN [None]
  - FATIGUE [None]
  - MENSTRUAL DISORDER [None]
  - PHARYNGOLARYNGEAL PAIN [None]
